FAERS Safety Report 9704702 (Version 7)
Quarter: 2016Q4

REPORT INFORMATION
  Report Type: Spontaneous
  Country: JP (occurrence: JP)
  Receive Date: 20131122
  Receipt Date: 20161212
  Transmission Date: 20170207
  Serious: Yes (Disabling)
  Sender: FDA-Public Use
  Company Number: JP-JNJFOC-20131109498

PATIENT
  Age: 66 Year
  Sex: Male
  Weight: 44 kg

DRUGS (9)
  1. GRANISETRON HYDROCHLORIDE. [Concomitant]
     Active Substance: GRANISETRON HYDROCHLORIDE
     Indication: CASTLEMAN^S DISEASE
     Route: 042
     Dates: start: 20121022, end: 20130213
  2. VALGANCICLOVIR HYDROCHLORIDE. [Concomitant]
     Active Substance: VALGANCICLOVIR HYDROCHLORIDE
     Indication: CASTLEMAN^S DISEASE
     Route: 048
     Dates: start: 201305
  3. DOXIL [Suspect]
     Active Substance: DOXORUBICIN HYDROCHLORIDE
     Indication: HIV INFECTION
     Dosage: EVERY 21 DAYS
     Route: 042
     Dates: start: 201211
  4. RALTEGRAVIR POTASSIUM [Concomitant]
     Active Substance: RALTEGRAVIR POTASSIUM
     Indication: HIV INFECTION
     Route: 048
     Dates: start: 20110517
  5. RITUXIMAB [Suspect]
     Active Substance: RITUXIMAB
     Indication: CASTLEMAN^S DISEASE
     Route: 042
     Dates: start: 201306
  6. RITUXIMAB [Suspect]
     Active Substance: RITUXIMAB
     Indication: HIV INFECTION
     Route: 042
     Dates: start: 201306
  7. DOXIL [Suspect]
     Active Substance: DOXORUBICIN HYDROCHLORIDE
     Indication: CASTLEMAN^S DISEASE
     Dosage: EVERY 21 DAYS
     Route: 042
     Dates: start: 201211
  8. SAMTIREL [Concomitant]
     Active Substance: ATOVAQUONE
     Indication: HIV INFECTION
     Route: 048
     Dates: start: 20110419, end: 20130905
  9. EPZICOM [Concomitant]
     Active Substance: ABACAVIR SULFATE\LAMIVUDINE
     Indication: HIV INFECTION
     Route: 048
     Dates: start: 20110517

REACTIONS (2)
  - Interstitial lung disease [Recovered/Resolved]
  - Product use issue [Unknown]

NARRATIVE: CASE EVENT DATE: 20130403
